FAERS Safety Report 22321178 (Version 1)
Quarter: 2023Q2

REPORT INFORMATION
  Report Type: Spontaneous
  Country: None (occurrence: US)
  Receive Date: 20230515
  Receipt Date: 20230515
  Transmission Date: 20230721
  Serious: Yes (Death)
  Sender: FDA-Public Use
  Company Number: US-GenBioPro-2141474

PATIENT
  Age: 35 Year
  Sex: Female

DRUGS (2)
  1. MIFEPRISTONE [Suspect]
     Active Substance: MIFEPRISTONE
     Route: 048
     Dates: start: 20221207, end: 20221207
  2. MISOPROSTOL [Interacting]
     Active Substance: MISOPROSTOL
     Route: 067
     Dates: start: 20221207, end: 20221207

REACTIONS (1)
  - Death [Fatal]
